FAERS Safety Report 5130601-7 (Version None)
Quarter: 2006Q4

REPORT INFORMATION
  Report Type: 
  Country: None (occurrence: None)
  Receive Date: 20061017
  Receipt Date: 20061017
  Transmission Date: 20070319
  Serious: Yes (Hospitalization)
  Sender: FDA-Public Use
  Company Number: None

PATIENT
  Age: 86 Year
  Sex: Male
  Weight: 63.9572 kg

DRUGS (5)
  1. XELODA [Suspect]
     Indication: COLON CANCER METASTATIC
     Dosage: 1800 MG BID PO
     Route: 048
     Dates: start: 20060924, end: 20061008
  2. BEVACIZUMAB [Suspect]
     Indication: COLON CANCER METASTATIC
     Dosage: 480 Q3W PO
     Route: 048
     Dates: start: 20060922
  3. MORPHINE [Concomitant]
  4. LACTULASE [Concomitant]
  5. ALENE [Concomitant]

REACTIONS (2)
  - DIARRHOEA [None]
  - VOMITING [None]
